FAERS Safety Report 6717654-7 (Version None)
Quarter: 2010Q2

REPORT INFORMATION
  Report Type: 
  Country: None (occurrence: None)
  Receive Date: 20100510
  Receipt Date: 20100428
  Transmission Date: 20101027
  Serious: Yes (Hospitalization)
  Sender: FDA-Public Use
  Company Number: JP-PFIZER INC-2008089565

PATIENT
  Age: 77 Year
  Sex: Female

DRUGS (3)
  1. LIPITOR [Suspect]
     Indication: HYPERLIPIDAEMIA
     Dosage: 10 MG/DAY
     Route: 048
     Dates: start: 20080130, end: 20080201
  2. PROCYLIN [Concomitant]
     Dosage: UNK
  3. CRAVIT [Concomitant]
     Dosage: UNK

REACTIONS (3)
  - ABSCESS LIMB [None]
  - DIARRHOEA [None]
  - PAIN IN EXTREMITY [None]
